FAERS Safety Report 15165871 (Version 1)
Quarter: 2018Q3

REPORT INFORMATION
  Report Type: Spontaneous
  Country: CO (occurrence: CO)
  Receive Date: 20180719
  Receipt Date: 20180719
  Transmission Date: 20181010
  Serious: Yes (Death, Other)
  Sender: FDA-Public Use
  Company Number: CO-SA-2018SA190675

PATIENT
  Age: 65 Year
  Sex: Female

DRUGS (1)
  1. THYMOGLOBULIN [Suspect]
     Active Substance: LAPINE T-LYMPHOCYTE IMMUNE GLOBULIN
     Indication: PREMEDICATION
     Dosage: 75 MG, QD
     Route: 042
     Dates: start: 20180604, end: 20180608

REACTIONS (3)
  - Sudden death [Fatal]
  - Lymphocyte count decreased [Unknown]
  - Product preparation error [Unknown]

NARRATIVE: CASE EVENT DATE: 20180604
